FAERS Safety Report 22125159 (Version 1)
Quarter: 2023Q1

REPORT INFORMATION
  Report Type: Spontaneous
  Country: US (occurrence: None)
  Receive Date: 20230321
  Receipt Date: 20230321
  Transmission Date: 20230418
  Serious: Yes (Hospitalization)
  Sender: FDA-Public Use
  Company Number: None

PATIENT
  Sex: Female

DRUGS (1)
  1. INGREZZA [Suspect]
     Active Substance: VALBENAZINE
     Indication: Dyskinesia
     Dosage: 40MG DAILY ORAL?
     Route: 048
     Dates: start: 20230309

REACTIONS (2)
  - Pneumonia aspiration [None]
  - Urinary tract infection [None]
